FAERS Safety Report 7360145-3 (Version None)
Quarter: 2011Q1

REPORT INFORMATION
  Report Type: 
  Country: None (occurrence: None)
  Receive Date: 20110318
  Receipt Date: 20110310
  Transmission Date: 20110831
  Serious: Yes (Hospitalization)
  Sender: FDA-Public Use
  Company Number: US-BIOGENIDEC-2011BI002460

PATIENT
  Age: 32 Year
  Sex: Female
  Weight: 69 kg

DRUGS (1)
  1. TYSABRI [Suspect]
     Indication: MULTIPLE SCLEROSIS
     Route: 042
     Dates: start: 20110113

REACTIONS (3)
  - DEPRESSION [None]
  - BACK PAIN [None]
  - SUICIDAL IDEATION [None]
